FAERS Safety Report 23048857 (Version 1)
Quarter: 2023Q4

REPORT INFORMATION
  Report Type: Report from Study
  Country: CA (occurrence: CA)
  Receive Date: 20231010
  Receipt Date: 20231010
  Transmission Date: 20240109
  Serious: Yes (Other)
  Sender: FDA-Public Use
  Company Number: CA-BIOGEN-2023BI01230052

PATIENT
  Age: 77 Year
  Sex: Male

DRUGS (1)
  1. DALFAMPRIDINE [Suspect]
     Active Substance: DALFAMPRIDINE
     Indication: Multiple sclerosis
     Route: 050
     Dates: start: 20130722, end: 20230529

REACTIONS (2)
  - Intracranial aneurysm [Unknown]
  - Seizure [Unknown]

NARRATIVE: CASE EVENT DATE: 20230529
